FAERS Safety Report 5231974-7 (Version None)
Quarter: 2007Q1

REPORT INFORMATION
  Report Type: 
  Country: None (occurrence: None)
  Receive Date: 20070206
  Receipt Date: 20070128
  Transmission Date: 20070707
  Serious: Yes (Other)
  Sender: FDA-Public Use
  Company Number: ZA-PFIZER INC-2007007874

PATIENT
  Sex: Male

DRUGS (1)
  1. LIPITOR [Suspect]
     Dosage: DAILY DOSE:10MG
     Route: 048

REACTIONS (2)
  - GAMMA-GLUTAMYLTRANSFERASE [None]
  - INTRACRANIAL PRESSURE INCREASED [None]
